FAERS Safety Report 22391894 (Version 1)
Quarter: 2023Q2

REPORT INFORMATION
  Report Type: Spontaneous
  Country: DE (occurrence: DE)
  Receive Date: 20230601
  Receipt Date: 20230601
  Transmission Date: 20230721
  Serious: Yes (Other)
  Sender: FDA-Public Use
  Company Number: DE-CELLTRION INC.-2023DE010942

PATIENT

DRUGS (9)
  1. RITUXIMAB [Interacting]
     Active Substance: RITUXIMAB
     Indication: Kidney malformation
  2. RITUXIMAB [Interacting]
     Active Substance: RITUXIMAB
     Indication: Urinary tract malformation
  3. TACROLIMUS [Suspect]
     Active Substance: TACROLIMUS
     Indication: Urinary tract malformation
     Route: 065
  4. TACROLIMUS [Suspect]
     Active Substance: TACROLIMUS
     Indication: Kidney malformation
  5. PREDNISONE [Suspect]
     Active Substance: PREDNISONE
     Indication: Urinary tract malformation
     Route: 065
  6. PREDNISONE [Suspect]
     Active Substance: PREDNISONE
     Indication: Kidney malformation
  7. MYCOPHENOLATE MOFETIL [Interacting]
     Active Substance: MYCOPHENOLATE MOFETIL
     Indication: Kidney malformation
  8. MYCOPHENOLATE MOFETIL [Interacting]
     Active Substance: MYCOPHENOLATE MOFETIL
     Indication: Urinary tract malformation
  9. TOZINAMERAN [Suspect]
     Active Substance: TOZINAMERAN
     Indication: COVID-19 prophylaxis

REACTIONS (3)
  - Humoral immune defect [Unknown]
  - Vaccine interaction [Unknown]
  - Intentional product use issue [Unknown]
